FAERS Safety Report 6654376-5 (Version None)
Quarter: 2010Q1

REPORT INFORMATION
  Report Type: 
  Country: None (occurrence: None)
  Receive Date: 20100326
  Receipt Date: 20100318
  Transmission Date: 20100710
  Serious: Yes (Other)
  Sender: FDA-Public Use
  Company Number: ZA-PFIZER INC-2010035241

PATIENT
  Age: 84 Year
  Sex: Female

DRUGS (5)
  1. LYRICA [Suspect]
     Indication: BACK PAIN
     Dosage: 150 MG, 2X/DAY
     Route: 048
  2. ATORVASTATIN CALCIUM [Suspect]
     Dosage: UNK
     Route: 048
  3. ESCITALOPRAM [Suspect]
     Dosage: UNK
     Route: 048
  4. DICLOFENAC [Suspect]
     Dosage: UNK
     Route: 065
  5. COZAAR [Suspect]
     Dosage: UNK
     Route: 048

REACTIONS (1)
  - THROMBOCYTOPENIA [None]
